FAERS Safety Report 20423424 (Version 1)
Quarter: 2022Q1

REPORT INFORMATION
  Report Type: Report from Study
  Country: US (occurrence: US)
  Receive Date: 20220203
  Receipt Date: 20220203
  Transmission Date: 20220423
  Serious: Yes (Hospitalization)
  Sender: FDA-Public Use
  Company Number: US-GILEAD-2021-0529198

PATIENT
  Age: 67 Year
  Sex: Female
  Weight: 70.7 kg

DRUGS (8)
  1. SACITUZUMAB GOVITECAN [Suspect]
     Active Substance: SACITUZUMAB GOVITECAN
     Indication: Breast cancer metastatic
     Dosage: 10 MG/KG; DAYS 1 AND 8 OF 21-DAYS CYCLE.
     Route: 042
     Dates: start: 20200115, end: 20200122
  2. ZOCOR [Concomitant]
     Active Substance: SIMVASTATIN
     Indication: Hyperlipidaemia
     Dosage: 40 MG;1 TAB; QHS
     Route: 048
     Dates: start: 20020101
  3. MELOXICAM [Concomitant]
     Active Substance: MELOXICAM
     Indication: Bursitis
     Dosage: 15 MG, 1 TAB; QD
     Route: 048
     Dates: start: 20191201
  4. OMEPRAZOLE [Concomitant]
     Active Substance: OMEPRAZOLE
     Indication: Gastrooesophageal reflux disease
     Dosage: 20 MG; 1 CAPSULE-DELAYED RELEASE, QD
     Route: 048
     Dates: start: 20130101
  5. TYLENOL [Concomitant]
     Active Substance: ACETAMINOPHEN
     Indication: Bursitis
     Dosage: 500 MG, TAB, BID
     Route: 048
     Dates: start: 20191201
  6. CELEXA [Concomitant]
     Active Substance: CITALOPRAM HYDROBROMIDE
     Indication: Depression
     Dosage: 40 MG, 1 TAB, QD
     Route: 048
     Dates: start: 20060101
  7. ULTRAM [Concomitant]
     Active Substance: TRAMADOL HYDROCHLORIDE
     Indication: Product used for unknown indication
     Dosage: 1 TAB; QID (Q6HRS), PRN
     Route: 048
     Dates: start: 20200123
  8. ZOFRAN [Concomitant]
     Active Substance: ONDANSETRON HYDROCHLORIDE
     Indication: Product used for unknown indication
     Dosage: 8 MG, TID (Q8HRS); PRN
     Route: 048
     Dates: start: 20200219

REACTIONS (2)
  - Hypertension [Recovered/Resolved]
  - Gastrooesophageal reflux disease [Recovered/Resolved]

NARRATIVE: CASE EVENT DATE: 20200219
